FAERS Safety Report 16653908 (Version 2)
Quarter: 2019Q4

REPORT INFORMATION
  Report Type: Spontaneous
  Country: US (occurrence: US)
  Receive Date: 20190731
  Receipt Date: 20191125
  Transmission Date: 20200122
  Serious: No
  Sender: FDA-Public Use
  Company Number: US-009507513-1907USA015696

PATIENT
  Sex: Female

DRUGS (1)
  1. NUVARING [Suspect]
     Active Substance: ETHINYL ESTRADIOL\ETONOGESTREL
     Dosage: .015/.12; 1 RING, ^USE FOR 4 WEEKS CONTINUOUSLY^

REACTIONS (2)
  - Incorrect product administration duration [Unknown]
  - No adverse event [Unknown]
